FAERS Safety Report 9484945 (Version 1)
Quarter: 2013Q3

REPORT INFORMATION
  Report Type: Report from Study
  Country: US (occurrence: US)
  Receive Date: 20130828
  Receipt Date: 20130828
  Transmission Date: 20140515
  Serious: No
  Sender: FDA-Public Use
  Company Number: US-ABBOTT-13P-163-1121058-00

PATIENT
  Sex: Male

DRUGS (3)
  1. ANDROGEL [Suspect]
     Indication: BLOOD TESTOSTERONE DECREASED
     Dosage: FOUR PUMPS PER DAY
     Dates: start: 201211
  2. ANDROGEL [Suspect]
     Dates: start: 201305
  3. PROSCAR [Concomitant]
     Indication: PRODUCT USED FOR UNKNOWN INDICATION

REACTIONS (2)
  - Blood testosterone decreased [Not Recovered/Not Resolved]
  - Medication error [Not Recovered/Not Resolved]
